FAERS Safety Report 5356576-3 (Version None)
Quarter: 2007Q2

REPORT INFORMATION
  Report Type: 
  Country: None (occurrence: None)
  Receive Date: 20070612
  Receipt Date: 20070529
  Transmission Date: 20071010
  Serious: Yes (Hospitalization)
  Sender: FDA-Public Use
  Company Number: 2007P1000179

PATIENT
  Age: 54 Year
  Sex: Female

DRUGS (10)
  1. BUSULFAN                 (BUSULFAN) [Suspect]
     Indication: STEM CELL TRANSPLANT
     Dosage: SEE IMAGE
     Route: 042
     Dates: start: 20061128, end: 20061128
  2. BUSULFAN                 (BUSULFAN) [Suspect]
     Indication: STEM CELL TRANSPLANT
     Dosage: SEE IMAGE
     Route: 042
     Dates: start: 20061129, end: 20061201
  3. BUSULFAN                 (BUSULFAN) [Suspect]
     Indication: STEM CELL TRANSPLANT
     Dosage: SEE IMAGE
     Route: 042
     Dates: start: 20061202, end: 20061202
  4. NEUPOGEN [Suspect]
     Dosage: 75 UG; SC
     Route: 058
     Dates: start: 20070131, end: 20070209
  5. NEUTROGIN (LENOGRASTIM) [Suspect]
     Dosage: 250 UG; IV
     Route: 042
     Dates: start: 20061210, end: 20061219
  6. IMATINIB MESYLATE [Concomitant]
  7. VALPROATE SODIUM [Concomitant]
  8. CYCLOPHOSPHAMIDE [Concomitant]
  9. METHOTREXATE [Concomitant]
  10. TACROLIMUS [Concomitant]

REACTIONS (10)
  - ANOREXIA [None]
  - DEPRESSED LEVEL OF CONSCIOUSNESS [None]
  - GRAFT VERSUS HOST DISEASE [None]
  - INAPPROPRIATE ANTIDIURETIC HORMONE SECRETION [None]
  - MALAISE [None]
  - NAUSEA [None]
  - SEPSIS [None]
  - STEM CELL TRANSPLANT [None]
  - THROMBOTIC MICROANGIOPATHY [None]
  - VOMITING [None]
